FAERS Safety Report 6077076-1 (Version None)
Quarter: 2009Q1

REPORT INFORMATION
  Report Type: 
  Country: None (occurrence: None)
  Receive Date: 20090211
  Receipt Date: 20090211
  Transmission Date: 20090719
  Serious: No
  Sender: FDA-Public Use
  Company Number: None

PATIENT
  Sex: Female

DRUGS (2)
  1. LUPRON DEPOT [Suspect]
     Indication: PRECOCIOUS PUBERTY
     Dosage: 7.5MG EVERY28 DAYS IM
     Route: 030
     Dates: start: 20090101, end: 20090210
  2. LUPRON DEPOT [Suspect]

REACTIONS (2)
  - RASH PRURITIC [None]
  - SIMILAR REACTION ON PREVIOUS EXPOSURE TO DRUG [None]
